FAERS Safety Report 8921497 (Version 5)
Quarter: 2013Q2

REPORT INFORMATION
  Report Type: Report from Study
  Country: AR (occurrence: AR)
  Receive Date: 20121121
  Receipt Date: 20130422
  Transmission Date: 20140414
  Serious: Yes (Hospitalization, Other)
  Sender: FDA-Public Use
  Company Number: AR-ABBOTT-12P-007-1010067-00

PATIENT
  Age: 55 Year
  Sex: Female

DRUGS (1)
  1. HUMIRA [Suspect]
     Indication: RHEUMATOID ARTHRITIS
     Route: 058
     Dates: start: 20111229

REACTIONS (5)
  - Bunion [Recovered/Resolved]
  - Tendon disorder [Not Recovered/Not Resolved]
  - Lumbar vertebral fracture [Recovering/Resolving]
  - Paraesthesia [Not Recovered/Not Resolved]
  - Muscular weakness [Not Recovered/Not Resolved]
